FAERS Safety Report 8236008-8 (Version None)
Quarter: 2012Q1

REPORT INFORMATION
  Report Type: 
  Country: None (occurrence: None)
  Receive Date: 20120326
  Receipt Date: 20120321
  Transmission Date: 20120608
  Serious: Yes (Other)
  Sender: FDA-Public Use
  Company Number: GR-AMGEN-GRCSP2012014750

PATIENT
  Age: 78 Year
  Sex: Female

DRUGS (8)
  1. AZOPT [Concomitant]
     Indication: GLAUCOMA
     Dosage: UNK
     Route: 047
  2. TRAVATAN [Concomitant]
  3. GLUCOPHAGE [Concomitant]
     Indication: BLOOD GLUCOSE ABNORMAL
     Dosage: UNK
  4. PROLIA [Suspect]
     Dosage: 60 MG, ONE TIME DOSE
     Route: 058
     Dates: start: 20120220
  5. PROLIA [Suspect]
     Indication: OSTEOPOROSIS
     Dosage: 60 MG, ONE TIME DOSE
     Route: 058
     Dates: start: 20110923
  6. TRAVATAN [Concomitant]
     Indication: GLAUCOMA
     Dosage: UNK
  7. FLUTEX [Concomitant]
     Indication: HYPERTENSION
     Dosage: 1.5 MG, UNK
  8. EXFORGE [Concomitant]
     Dosage: UNK

REACTIONS (1)
  - BLOOD GLUCOSE INCREASED [None]
